FAERS Safety Report 9551684 (Version 1)
Quarter: 2013Q3

REPORT INFORMATION
  Report Type: Spontaneous
  Country: US (occurrence: US)
  Receive Date: 20130925
  Receipt Date: 20130925
  Transmission Date: 20140515
  Serious: No
  Sender: FDA-Public Use
  Company Number: US-JNJFOC-20130910138

PATIENT
  Age: 32 Year
  Sex: Male
  Weight: 83.92 kg

DRUGS (2)
  1. DURAGESIC [Suspect]
     Indication: BACK PAIN
     Dosage: 100+50 UG/HR
     Route: 062
  2. OXYCODONE [Concomitant]
     Indication: BREAKTHROUGH PAIN
     Route: 048

REACTIONS (8)
  - Poor quality drug administered [Unknown]
  - Feeling hot [Recovered/Resolved]
  - Product quality issue [Unknown]
  - Malaise [Recovered/Resolved]
  - Nausea [Recovered/Resolved]
  - Hyperhidrosis [Recovered/Resolved]
  - Flushing [Recovered/Resolved]
  - Erythema [Recovered/Resolved]
